FAERS Safety Report 8621566-1 (Version None)
Quarter: 2012Q3

REPORT INFORMATION
  Report Type: 
  Country: None (occurrence: None)
  Receive Date: 20120825
  Receipt Date: 20120820
  Transmission Date: 20120928
  Serious: Yes (Disabling)
  Sender: FDA-Public Use
  Company Number: US-009507513-1208USA006975

PATIENT

DRUGS (3)
  1. SAPHRIS [Suspect]
     Indication: SCHIZOPHRENIA
     Dosage: 5 MG, QAM
     Route: 060
     Dates: start: 20120601
  2. SYNTHROID [Concomitant]
  3. METOPROLOL SUCCINATE [Concomitant]

REACTIONS (15)
  - SUFFOCATION FEELING [None]
  - PNEUMONIA [None]
  - FATIGUE [None]
  - DRY MOUTH [None]
  - ABDOMINAL PAIN UPPER [None]
  - CHOKING [None]
  - DYSPNOEA [None]
  - FLATULENCE [None]
  - HYPOAESTHESIA ORAL [None]
  - BRUXISM [None]
  - ANXIETY [None]
  - SALIVARY HYPERSECRETION [None]
  - DECREASED APPETITE [None]
  - UNDERDOSE [None]
  - VOMITING [None]
